FAERS Safety Report 17966317 (Version 1)
Quarter: 2020Q3

REPORT INFORMATION
  Report Type: Spontaneous
  Country: ES (occurrence: ES)
  Receive Date: 20200701
  Receipt Date: 20200701
  Transmission Date: 20201103
  Serious: Yes (Other)
  Sender: FDA-Public Use
  Company Number: ES-AMGEN-ESPSP2020103972

PATIENT
  Age: 58 Year
  Sex: Female

DRUGS (1)
  1. AIMOVIG [Suspect]
     Active Substance: ERENUMAB-AOOE
     Indication: MIGRAINE
     Dosage: UNK (INYECCION UNA VEZ AL MES 70 MG SOLUCION INYECTABLE EN PLUMA PRECARGADA, 1 PLUMA PRECARGADA DE 1
     Route: 058
     Dates: start: 20200208

REACTIONS (3)
  - Chest pain [Recovering/Resolving]
  - Dysphagia [Recovering/Resolving]
  - Pain in extremity [Recovering/Resolving]

NARRATIVE: CASE EVENT DATE: 20200304
